FAERS Safety Report 23156860 (Version 1)
Quarter: 2023Q4

REPORT INFORMATION
  Report Type: Spontaneous
  Country: US (occurrence: US)
  Receive Date: 20231108
  Receipt Date: 20231108
  Transmission Date: 20240109
  Serious: No
  Sender: FDA-Public Use
  Company Number: US-GLAXOSMITHKLINE-USCH2023052480

PATIENT

DRUGS (1)
  1. LAMISIL [Suspect]
     Active Substance: TERBINAFINE HYDROCHLORIDE
     Indication: Product used for unknown indication
     Dosage: UNK
     Dates: start: 20231101, end: 20231101

REACTIONS (1)
  - Product administered at inappropriate site [Unknown]

NARRATIVE: CASE EVENT DATE: 20231101
